FAERS Safety Report 6936699-5 (Version None)
Quarter: 2010Q3

REPORT INFORMATION
  Report Type: 
  Country: None (occurrence: None)
  Receive Date: 20100823
  Receipt Date: 20100813
  Transmission Date: 20110219
  Serious: Yes (Hospitalization)
  Sender: FDA-Public Use
  Company Number: US-AMGEN-KDC431152

PATIENT
  Age: 76 Year
  Sex: Female
  Weight: 66 kg

DRUGS (4)
  1. PANITUMUMAB [Suspect]
     Indication: OESOPHAGEAL CARCINOMA
     Route: 042
     Dates: start: 20100512
  2. DOCETAXEL [Suspect]
     Route: 042
     Dates: start: 20100512
  3. CISPLATIN [Suspect]
     Route: 042
     Dates: start: 20100512
  4. RADIATION THERAPY [Suspect]
     Dates: start: 20100512

REACTIONS (3)
  - GASTROINTESTINAL ANASTOMOTIC LEAK [None]
  - HYPOKALAEMIA [None]
  - NEUTROPENIA [None]
